FAERS Safety Report 16798929 (Version 1)
Quarter: 2019Q3

REPORT INFORMATION
  Report Type: Spontaneous
  Country: US (occurrence: US)
  Receive Date: 20190911
  Receipt Date: 20190911
  Transmission Date: 20191005
  Serious: Yes (Other)
  Sender: FDA-Public Use
  Company Number: None

PATIENT
  Age: 22 Year
  Sex: Male
  Weight: 72.57 kg

DRUGS (1)
  1. DANK VAPES [Suspect]
     Active Substance: DEVICE\HERBALS

REACTIONS (5)
  - Product taste abnormal [None]
  - Pulmonary pain [None]
  - Lung disorder [None]
  - Device issue [None]
  - Chest pain [None]

NARRATIVE: CASE EVENT DATE: 20170907
